FAERS Safety Report 6044815-5 (Version None)
Quarter: 2009Q1

REPORT INFORMATION
  Report Type: 
  Country: None (occurrence: None)
  Receive Date: 20090120
  Receipt Date: 20090113
  Transmission Date: 20090719
  Serious: Yes (Other)
  Sender: FDA-Public Use
  Company Number: US-GENENTECH-275086

PATIENT
  Age: 72 Year
  Sex: Female
  Weight: 110 kg

DRUGS (14)
  1. XOLAIR [Suspect]
     Indication: ASTHMA
     Dosage: 300 MG, Q2W
     Route: 058
     Dates: start: 20080422
  2. ADVAIR DISKUS 100/50 [Concomitant]
     Indication: ASTHMA
     Dosage: 1 PUFF, BID
  3. PROAIR (UNITED STATES) [Concomitant]
     Indication: ASTHMA
     Dosage: 2 PUFF, PRN
  4. XOPENEX [Concomitant]
     Indication: ASTHMA
     Dosage: 0.63 MG, PRN
  5. SINGULAIR [Concomitant]
     Indication: ASTHMA
     Dosage: 1 TABLET, QHS
     Route: 048
  6. ALLEGRA D 24 HOUR [Concomitant]
     Indication: HYPERSENSITIVITY
     Dosage: UNK
     Route: 048
  7. NASACORT [Concomitant]
     Indication: HYPERSENSITIVITY
     Dosage: 1 UNK, QD
     Route: 045
  8. NEXIUM [Concomitant]
     Indication: GASTROOESOPHAGEAL REFLUX DISEASE
     Dosage: 1 TABLET, BID
     Route: 048
  9. ZANTAC [Concomitant]
     Indication: DRUG USE FOR UNKNOWN INDICATION
     Dosage: 1 TABLET, QHS
     Route: 048
  10. GLIPIZIDE [Concomitant]
     Indication: DRUG USE FOR UNKNOWN INDICATION
  11. METFORMIN HCL [Concomitant]
     Indication: DRUG USE FOR UNKNOWN INDICATION
  12. NORVASC [Concomitant]
     Indication: DRUG USE FOR UNKNOWN INDICATION
  13. MULTI-VITAMIN [Concomitant]
     Indication: DRUG USE FOR UNKNOWN INDICATION
  14. CALCIUM [Concomitant]
     Indication: DRUG USE FOR UNKNOWN INDICATION

REACTIONS (3)
  - CHEST DISCOMFORT [None]
  - POSTNASAL DRIP [None]
  - THROAT IRRITATION [None]
